FAERS Safety Report 7840779-X (Version None)
Quarter: 2011Q4

REPORT INFORMATION
  Report Type: 
  Country: None (occurrence: None)
  Receive Date: 20111021
  Receipt Date: 20111021
  Transmission Date: 20120403
  Serious: Yes (Other)
  Sender: FDA-Public Use
  Company Number: None

PATIENT
  Sex: Male

DRUGS (2)
  1. RIBASPHERE [Suspect]
     Indication: HEPATITIS C
     Dosage: 180 MCG QWK SQ
     Route: 058
     Dates: start: 20090512, end: 20090915
  2. PEGASYS [Suspect]
     Indication: HEPATITIS C
     Dosage: 1400 MG DAILY PO
     Route: 048
     Dates: start: 20090512, end: 20090915

REACTIONS (5)
  - WHITE BLOOD CELL COUNT DECREASED [None]
  - PLATELET COUNT DECREASED [None]
  - RED BLOOD CELL COUNT DECREASED [None]
  - FATIGUE [None]
  - HAEMORRHOIDS [None]
